FAERS Safety Report 4596294-2 (Version None)
Quarter: 2005Q1

REPORT INFORMATION
  Report Type: 
  Country: None (occurrence: None)
  Receive Date: 20050228
  Receipt Date: 20050218
  Transmission Date: 20050727
  Serious: Yes (Disabling)
  Sender: FDA-Public Use
  Company Number: SEWYE445822FEB05

PATIENT
  Age: 64 Year
  Sex: Female

DRUGS (7)
  1. TAZOCIN              (PIPERACILLIN/TAZOBACTAM, INJECTION) [Suspect]
     Indication: INFECTION
     Dosage: 4 G 2X PER 1 DAY INTRAVENOUS
     Route: 042
     Dates: start: 20041029, end: 20041109
  2. VFEND [Suspect]
     Dosage: 400 MG 1X PER 1 DAY ORAL
     Route: 048
     Dates: start: 20041029, end: 20041109
  3. SELO-ZOK              (METOPROLOL SUCCINATE) [Concomitant]
  4. NEXIUM [Concomitant]
  5. SOLU-CORTEF [Concomitant]
  6. NEORECORMON           (EPOETIN BETA) [Concomitant]
  7. ZOPICLONE (ZOPICLONE) [Concomitant]

REACTIONS (1)
  - DEAFNESS BILATERAL [None]
